FAERS Safety Report 7719095-2 (Version None)
Quarter: 2011Q3

REPORT INFORMATION
  Report Type: 
  Country: None (occurrence: None)
  Receive Date: 20110830
  Receipt Date: 20110823
  Transmission Date: 20111222
  Serious: Yes (Hospitalization, Other)
  Sender: FDA-Public Use
  Company Number: US-TEVA-297927USA

PATIENT
  Age: 28 Year
  Sex: Male

DRUGS (7)
  1. BENZTROPINE MESYLATE [Concomitant]
  2. LITHIUM CARBONATE [Concomitant]
  3. CLOZAPINE [Suspect]
     Dosage: 12.5 MG/DAY
  4. HALOPERIDOL [Concomitant]
  5. DEPAKOTE [Concomitant]
  6. PERPHENAZINE [Concomitant]
  7. AMOXI-CLAVULANICO [Concomitant]
     Indication: LOCALISED INFECTION

REACTIONS (1)
  - RENAL FAILURE ACUTE [None]
